FAERS Safety Report 9742699 (Version 1)
Quarter: 2013Q4

REPORT INFORMATION
  Report Type: Spontaneous
  Country: US (occurrence: US)
  Receive Date: 20131210
  Receipt Date: 20131210
  Transmission Date: 20140711
  Serious: No
  Sender: FDA-Public Use
  Company Number: US-GILEAD-2009-0025669

PATIENT
  Sex: Female
  Weight: 79.38 kg

DRUGS (7)
  1. LETAIRIS [Suspect]
     Indication: PULMONARY ARTERIAL HYPERTENSION
     Route: 048
     Dates: start: 20080604, end: 20091124
  2. ALDACTONE [Concomitant]
  3. COUMADIN [Concomitant]
  4. LASIX [Concomitant]
  5. PRILOSEC [Concomitant]
  6. RHINOCORT [Concomitant]
  7. ZYRTEC [Concomitant]

REACTIONS (1)
  - Fluid retention [Unknown]
